FAERS Safety Report 9034065 (Version 2)
Quarter: 2014Q2

REPORT INFORMATION
  Report Type: Spontaneous
  Country: CA (occurrence: CA)
  Receive Date: 20130128
  Receipt Date: 20140610
  Transmission Date: 20141212
  Serious: Yes (Hospitalization, Other)
  Sender: FDA-Public Use
  Company Number: CA-AMGEN-CANSP2012062563

PATIENT
  Age: 82 Year
  Sex: Female
  Weight: 45.45 kg

DRUGS (8)
  1. PROLIA [Suspect]
     Indication: OSTEOPOROSIS POSTMENOPAUSAL
     Dosage: 60 MG, Q6MO
     Route: 058
     Dates: start: 20110404
  2. MACROBID                           /00024401/ [Concomitant]
  3. VALSARTAN [Concomitant]
  4. EURO-FER [Concomitant]
  5. RHINOCORT                          /00212602/ [Concomitant]
  6. ARIMIDEX [Concomitant]
  7. MELOXICAM [Concomitant]
  8. MOXOVAS [Concomitant]

REACTIONS (4)
  - Uterine cancer [Recovered/Resolved]
  - Hip arthroplasty [Recovering/Resolving]
  - Arthritis [Not Recovered/Not Resolved]
  - Pain in extremity [Unknown]
